FAERS Safety Report 8251872-4 (Version None)
Quarter: 2012Q2

REPORT INFORMATION
  Report Type: 
  Country: None (occurrence: None)
  Receive Date: 20120402
  Receipt Date: 20120319
  Transmission Date: 20120825
  Serious: No
  Sender: FDA-Public Use
  Company Number: US-ENDO PHARMACEUTICALS INC.-OPER20120356

PATIENT
  Sex: Female

DRUGS (5)
  1. OPANA ER [Suspect]
     Route: 048
     Dates: start: 20120316
  2. OXYCONTIN [Suspect]
     Route: 048
  3. OPANA ER [Suspect]
     Route: 048
     Dates: end: 20120101
  4. OPANA ER [Suspect]
     Route: 048
     Dates: start: 20120316
  5. OPANA ER [Suspect]
     Indication: PAIN
     Route: 048
     Dates: end: 20120101

REACTIONS (3)
  - NAUSEA [None]
  - DRUG EFFECT DECREASED [None]
  - VOMITING [None]
